FAERS Safety Report 18535516 (Version 1)
Quarter: 2020Q4

REPORT INFORMATION
  Report Type: Spontaneous
  Country: US (occurrence: US)
  Receive Date: 20201123
  Receipt Date: 20201123
  Transmission Date: 20210114
  Serious: No
  Sender: FDA-Public Use
  Company Number: US-ROCHE-2569198

PATIENT
  Age: 8 Year
  Sex: Male
  Weight: 23.5 kg

DRUGS (2)
  1. TAMIFLU [Suspect]
     Active Substance: OSELTAMIVIR PHOSPHATE
     Indication: INFLUENZA
     Dosage: (6 MG PER ML) TWICE A DAY FOR 5 DAYS LIQUID (ONCE IN 12 HOURS)
     Route: 048
     Dates: start: 20200202, end: 20200204
  2. ALBUTEROL SULFATE. [Concomitant]
     Active Substance: ALBUTEROL SULFATE
     Dosage: 2.5 MG /3 ML SOL

REACTIONS (2)
  - Hallucination [Recovered/Resolved]
  - Muscle rigidity [Recovered/Resolved]

NARRATIVE: CASE EVENT DATE: 20200203
